FAERS Safety Report 9219372 (Version 1)
Quarter: 2013Q1

REPORT INFORMATION
  Report Type: Spontaneous
  Country: US (occurrence: None)
  Receive Date: 20120828
  Receipt Date: 20120828
  Transmission Date: 20140127
  Serious: Yes (Other)
  Sender: FDA-Public Use
  Company Number: 2011BH022725

PATIENT
  Sex: 0

DRUGS (1)
  1. IMUNOGLOBULIN, NORMAL HUMAN LIQUID 0.2 G/ML SOLUTION FOR [Suspect]
     Indication: PRODUCT USED FOR UNKNOWN INDICATION

REACTIONS (1)
  - Transfusion-related acute lung injury [None]
